FAERS Safety Report 12886224 (Version 1)
Quarter: 2016Q4

REPORT INFORMATION
  Report Type: Spontaneous
  Country: TW (occurrence: TW)
  Receive Date: 20161026
  Receipt Date: 20161026
  Transmission Date: 20170207
  Serious: Yes (Hospitalization, Other)
  Sender: FDA-Public Use
  Company Number: TW-SA-2016SA191255

PATIENT
  Sex: Male
  Weight: 29.6 kg

DRUGS (22)
  1. INDERAL [Concomitant]
     Active Substance: PROPRANOLOL HYDROCHLORIDE
     Dosage: DOSE: 1 PACK
     Route: 048
  2. ACETAMINOPHEN. [Concomitant]
     Active Substance: ACETAMINOPHEN
  3. ACETYLCYSTEINE. [Concomitant]
     Active Substance: ACETYLCYSTEINE
  4. NEXIUM [Concomitant]
     Active Substance: ESOMEPRAZOLE MAGNESIUM
     Dosage: 0.5 TABLET ASORDER (40 MG)
     Route: 048
  5. CALWELL CHEWABLE [Concomitant]
     Route: 048
  6. ELECTROLYTE SOLUTIONS [Concomitant]
     Active Substance: UNSPECIFIED INGREDIENT
  7. DEXTROSE. [Concomitant]
     Active Substance: DEXTROSE
  8. POVIDONE IODINE/POVIDONE [Concomitant]
  9. DIPHENHYDRAMINE HYDROCHLORIDE. [Concomitant]
     Active Substance: DIPHENHYDRAMINE HYDROCHLORIDE
  10. FLUOCINONIDE. [Concomitant]
     Active Substance: FLUOCINONIDE
  11. OFLOXACIN. [Concomitant]
     Active Substance: OFLOXACIN
  12. SOLTAN [Concomitant]
     Dosage: FOR 14 DAYS
     Route: 048
  13. PREDNISOLONE. [Concomitant]
     Active Substance: PREDNISOLONE
  14. TERBUTALINE SULFATE. [Concomitant]
     Active Substance: TERBUTALINE SULFATE
  15. CYPROMIN [Concomitant]
     Route: 048
  16. TETRACYCLINE HYDROCHLORIDE. [Concomitant]
     Active Substance: TETRACYCLINE HYDROCHLORIDE
  17. MYOZYME [Suspect]
     Active Substance: ALGLUCOSIDASE ALFA
     Indication: GLYCOGEN STORAGE DISEASE TYPE II
     Route: 041
     Dates: start: 20071205
  18. CALCIUM CITRATE [Concomitant]
     Active Substance: CALCIUM CITRATE
  19. BETAMETHASONE VALERATE. [Concomitant]
     Active Substance: BETAMETHASONE VALERATE
  20. ZALAIN [Suspect]
     Active Substance: SERTACONAZOLE NITRATE
     Route: 065
     Dates: start: 201609
  21. ASWELL [Concomitant]
     Dosage: FOR 14 DAYS
     Route: 048
  22. BISACODYL. [Concomitant]
     Active Substance: BISACODYL

REACTIONS (22)
  - Wheezing [Unknown]
  - Erythema [Unknown]
  - Sputum increased [Unknown]
  - Gastroenteritis [Unknown]
  - Otitis externa [Unknown]
  - Candida infection [Unknown]
  - Eczema [Unknown]
  - Decreased appetite [Unknown]
  - Pneumonia [Unknown]
  - Pyrexia [Recovered/Resolved]
  - Rhonchi [Unknown]
  - Fracture [Unknown]
  - Pneumonia aspiration [Unknown]
  - Dermatophytosis of nail [Unknown]
  - Rales [Unknown]
  - Respiratory failure [Unknown]
  - Mastoiditis [Unknown]
  - Ear neoplasm [Unknown]
  - Otorrhoea [Unknown]
  - Influenza [Unknown]
  - Rash [Unknown]
  - Otitis media chronic [Unknown]

NARRATIVE: CASE EVENT DATE: 201408
